FAERS Safety Report 6924142-1 (Version None)
Quarter: 2010Q3

REPORT INFORMATION
  Report Type: 
  Country: None (occurrence: None)
  Receive Date: 20100813
  Receipt Date: 20100802
  Transmission Date: 20110219
  Serious: Yes (Life-Threatening, Hospitalization)
  Sender: FDA-Public Use
  Company Number: SA-WYE-H16854510

PATIENT
  Age: 36 Year
  Sex: Female

DRUGS (11)
  1. CORDARONE [Suspect]
     Indication: TORSADE DE POINTES
     Dosage: DOSE AND FREQUENCY NOT SPECIFIED
     Route: 065
     Dates: start: 19981201
  2. NITROFURANTOIN [Concomitant]
     Dosage: DOSE AND FREQUENCY NOT SPECIFIED
     Route: 065
     Dates: start: 19980101
  3. SULFAMETHOXAZOLE AND TRIMETHOPRIM [Concomitant]
     Dosage: DOSE AND FREQUENCY NOT SPECIFIED
     Route: 065
     Dates: start: 19980101
  4. LOPERAMIDE [Concomitant]
     Dosage: DOSE AND FREQUENCY NOT SPECIFIED
     Route: 065
     Dates: start: 19980101
  5. RANITIDINE [Interacting]
     Indication: DYSPEPSIA
     Route: 065
     Dates: start: 19981201
  6. RANITIDINE [Interacting]
     Indication: GASTROOESOPHAGEAL REFLUX DISEASE
  7. METRONIDAZOLE [Interacting]
     Indication: HAEMATOMA INFECTION
     Dosage: DOSE AND FREQUENCY NOT SPECIFIED
     Route: 065
     Dates: start: 19980101
  8. ONDANSETRON [Concomitant]
  9. CISAPRIDE [Interacting]
     Indication: DYSPEPSIA
     Route: 065
     Dates: start: 19981201, end: 19981207
  10. CISAPRIDE [Interacting]
     Indication: GASTROOESOPHAGEAL REFLUX DISEASE
  11. TETRACYCLINE [Concomitant]
     Dosage: DOSE AND FREQUENCY NOT SPECIFIED
     Route: 065
     Dates: start: 19980101

REACTIONS (2)
  - DRUG INEFFECTIVE [None]
  - DRUG INTERACTION [None]
